FAERS Safety Report 7731167-5 (Version None)
Quarter: 2011Q3

REPORT INFORMATION
  Report Type: 
  Country: None (occurrence: None)
  Receive Date: 20110906
  Receipt Date: 20110906
  Transmission Date: 20111222
  Serious: Yes (Life-Threatening)
  Sender: FDA-Public Use
  Company Number: None

PATIENT
  Age: 48 Year
  Sex: Female
  Weight: 56.699 kg

DRUGS (2)
  1. CIPROFLOXACIN [Suspect]
     Indication: SWELLING FACE
     Dosage: 1 TAB A DAY
     Route: 048
     Dates: start: 20090623, end: 20091030
  2. LEVAQUIN [Concomitant]
     Indication: BACTERIAL INFECTION
     Dosage: 1 TAB A DAY 7 REFILLS
     Route: 004
     Dates: start: 20101230, end: 20110216

REACTIONS (5)
  - ANGIOEDEMA [None]
  - GASTRIC DISORDER [None]
  - SUICIDAL IDEATION [None]
  - PAIN [None]
  - SWELLING FACE [None]
